FAERS Safety Report 16396595 (Version 3)
Quarter: 2020Q3

REPORT INFORMATION
  Report Type: Spontaneous
  Country: SI (occurrence: SI)
  Receive Date: 20190606
  Receipt Date: 20200701
  Transmission Date: 20201102
  Serious: Yes (Hospitalization, Other)
  Sender: FDA-Public Use
  Company Number: SI-ASTRAZENECA-2019SE80942

PATIENT
  Age: 28 Year
  Sex: Male

DRUGS (7)
  1. SPIRIVA RESPIMAT [Concomitant]
     Active Substance: TIOTROPIUM BROMIDE
     Indication: ASTHMA
     Dosage: 2 INHALATION DAILY
     Route: 055
     Dates: start: 2018
  2. SYMBICORT [Concomitant]
     Active Substance: BUDESONIDE\FORMOTEROL FUMARATE DIHYDRATE
     Indication: ASTHMA
     Dosage: 160/4.5 2 INHALATIONS THREE TIMES A DAY
     Route: 055
     Dates: start: 2018
  3. HYDROCORTISONE. [Concomitant]
     Active Substance: HYDROCORTISONE
     Dosage: 10+5+5
     Route: 048
     Dates: start: 2018
  4. MEDROL [Concomitant]
     Active Substance: METHYLPREDNISOLONE
     Indication: ASTHMA
     Route: 048
     Dates: end: 201812
  5. OMIC OCAS [Concomitant]
     Dosage: 1 TABLET DAILY
     Route: 048
  6. FASENRA [Suspect]
     Active Substance: BENRALIZUMAB
     Indication: ASTHMA
     Dosage: 30 MG
     Route: 058
     Dates: start: 20181009, end: 20190528
  7. FOSTER [Concomitant]
     Active Substance: BECLOMETHASONE\FORMOTEROL
     Dosage: 200/6 2 INHALATION THREE TIMES A DAY
     Route: 055

REACTIONS (1)
  - Eosinophilic granulomatosis with polyangiitis [Recovered/Resolved with Sequelae]

NARRATIVE: CASE EVENT DATE: 20190528
